FAERS Safety Report 9507742 (Version 2)
Quarter: 2013Q3

REPORT INFORMATION
  Report Type: Not Available
  Country: FR (occurrence: FR)
  Receive Date: 20130909
  Receipt Date: 20130920
  Transmission Date: 20140515
  Serious: Yes (Hospitalization)
  Sender: FDA-Public Use
  Company Number: FR-NAPPMUNDI-GBR-2013-0015537

PATIENT
  Age: 29 Year
  Sex: Female

DRUGS (14)
  1. OXYCONTIN LP 40 MG, COMPRIME PELLICULE A LIBERATION PROLONGEE [Suspect]
     Indication: PRODUCT USED FOR UNKNOWN INDICATION
     Dosage: 40 MG, BID
     Route: 048
     Dates: end: 20130512
  2. ZOLINZA [Suspect]
     Indication: PRODUCT USED FOR UNKNOWN INDICATION
     Dosage: 100 MG, BID
     Route: 048
     Dates: start: 20130506, end: 20130513
  3. EFFENTORA [Suspect]
     Dosage: 400 MCG, Q4H
     Route: 002
     Dates: end: 20130515
  4. SEROPLEX [Concomitant]
     Route: 048
  5. GUTRON [Concomitant]
     Route: 048
  6. ASCOFER                            /00023513/ [Concomitant]
     Route: 048
  7. MESTINON [Concomitant]
     Route: 048
  8. SPIRIVA [Concomitant]
     Route: 055
  9. XANAX [Concomitant]
     Route: 048
  10. EUPANTOL [Concomitant]
     Route: 048
  11. STILNOX [Concomitant]
     Route: 048
  12. COLISTIMETHATE [Concomitant]
     Route: 055
  13. VORINOSTAT [Concomitant]
     Dosage: 100 MG, BID
     Dates: start: 20130506, end: 201307
  14. VORINOSTAT [Concomitant]
     Dosage: UNK
     Dates: start: 20130517, end: 201307

REACTIONS (1)
  - Small intestinal obstruction [Recovering/Resolving]
